FAERS Safety Report 4448866-3 (Version None)
Quarter: 2004Q3

REPORT INFORMATION
  Report Type: 
  Country: None (occurrence: None)
  Receive Date: 20040909
  Receipt Date: 20040824
  Transmission Date: 20050211
  Serious: Yes (Death, Hospitalization, Disabling, Other)
  Sender: FDA-Public Use
  Company Number: USA040876365

PATIENT
  Age: 69 Year
  Sex: Female

DRUGS (1)
  1. HUMULIN HUMAN INSULIN (RDNA) UNKNOWN FORMULATION (HU [Suspect]
     Dates: start: 19920101

REACTIONS (3)
  - BLINDNESS [None]
  - LEG AMPUTATION [None]
  - POOR PERIPHERAL CIRCULATION [None]
